FAERS Safety Report 17578664 (Version 2)
Quarter: 2020Q2

REPORT INFORMATION
  Report Type: Spontaneous
  Country: US (occurrence: US)
  Receive Date: 20200324
  Receipt Date: 20200506
  Transmission Date: 20200713
  Serious: No
  Sender: FDA-Public Use
  Company Number: US-TOLMAR, INC.-20US020735

PATIENT

DRUGS (1)
  1. NON-TOLMAR PRODUCT (FLUTICASONE PROPIONATE) [Suspect]
     Active Substance: FLUTICASONE PROPIONATE
     Indication: EOSINOPHILIC OESOPHAGITIS
     Dosage: 1.5 MG, BID
     Route: 065

REACTIONS (1)
  - Cortisol decreased [Unknown]
